FAERS Safety Report 22266835 (Version 1)
Quarter: 2023Q2

REPORT INFORMATION
  Report Type: Report from Study
  Country: US (occurrence: US)
  Receive Date: 20230428
  Receipt Date: 20230428
  Transmission Date: 20230721
  Serious: Yes (Other)
  Sender: FDA-Public Use
  Company Number: US-002147023-NVSC2023US093749

PATIENT
  Sex: Male

DRUGS (7)
  1. IMIQUIMOD [Suspect]
     Active Substance: IMIQUIMOD
     Indication: Psoriasis
     Dosage: 5 %
     Route: 061
  2. METOPROLOL [Suspect]
     Active Substance: METOPROLOL
     Indication: Psoriasis
     Dosage: 50 MG (OTHER DOSAGE: ER)
     Route: 065
  3. METHOTREXATE [Suspect]
     Active Substance: METHOTREXATE
     Indication: Psoriasis
     Dosage: UNK
     Route: 065
  4. VENTOLIN HFA [Suspect]
     Active Substance: ALBUTEROL SULFATE
     Indication: Psoriasis
     Dosage: 90 UG
     Route: 065
  5. FLUOXETINE [Suspect]
     Active Substance: FLUOXETINE HYDROCHLORIDE
     Indication: Psoriasis
     Dosage: 10 MG
     Route: 065
  6. CELECOXIB [Suspect]
     Active Substance: CELECOXIB
     Indication: Psoriasis
     Dosage: UNK
     Route: 048
  7. ASPIRIN [Suspect]
     Active Substance: ASPIRIN
     Indication: Psoriasis
     Dosage: 81 MG
     Route: 065

REACTIONS (8)
  - Psoriatic arthropathy [Unknown]
  - Rash pruritic [Not Recovered/Not Resolved]
  - Psoriasis [Unknown]
  - Skin hypopigmentation [Unknown]
  - Skin maceration [Unknown]
  - Rash [Unknown]
  - Skin plaque [Unknown]
  - Drug ineffective [Unknown]
